FAERS Safety Report 7386452-6 (Version None)
Quarter: 2011Q1

REPORT INFORMATION
  Report Type: 
  Country: None (occurrence: None)
  Receive Date: 20110323
  Receipt Date: 20110314
  Transmission Date: 20110831
  Serious: Yes (Hospitalization)
  Sender: FDA-Public Use
  Company Number: 2011MA002391

PATIENT
  Age: 47 Year
  Sex: Male

DRUGS (1)
  1. METFORMIN HYDROCHLORIDE [Suspect]
     Indication: TYPE 2 DIABETES MELLITUS
     Dosage: QD

REACTIONS (21)
  - DIARRHOEA [None]
  - VOMITING [None]
  - ALTERED STATE OF CONSCIOUSNESS [None]
  - DEHYDRATION [None]
  - AGITATION [None]
  - BLOOD PRESSURE DECREASED [None]
  - LACTIC ACIDOSIS [None]
  - CONFUSIONAL STATE [None]
  - RENAL FAILURE ACUTE [None]
  - CONTINUOUS HAEMODIAFILTRATION [None]
  - HYPOGLYCAEMIA [None]
  - BUNDLE BRANCH BLOCK RIGHT [None]
  - HYPERVENTILATION [None]
  - CARDIAC ARREST [None]
  - SINUS TACHYCARDIA [None]
  - TOXICITY TO VARIOUS AGENTS [None]
  - ELECTROCARDIOGRAM REPOLARISATION ABNORMALITY [None]
  - DEPRESSION [None]
  - DYSPNOEA [None]
  - NO THERAPEUTIC RESPONSE [None]
  - BRADYCARDIA [None]
